FAERS Safety Report 17890833 (Version 1)
Quarter: 2020Q2

REPORT INFORMATION
  Report Type: Spontaneous
  Country: CA (occurrence: CA)
  Receive Date: 20200612
  Receipt Date: 20200612
  Transmission Date: 20200714
  Serious: Yes (Other)
  Sender: FDA-Public Use
  Company Number: CA-TEVA-2020-CA-1247257

PATIENT
  Age: 68 Year
  Sex: Male

DRUGS (1)
  1. METHOTREXATE. [Suspect]
     Active Substance: METHOTREXATE
     Indication: PRODUCT USED FOR UNKNOWN INDICATION
     Route: 058

REACTIONS (9)
  - Off label use [Unknown]
  - Product use issue [Unknown]
  - Cough [Unknown]
  - Chills [Unknown]
  - Hyperhidrosis [Unknown]
  - Pyrexia [Unknown]
  - Sinusitis [Unknown]
  - Staphylococcal infection [Unknown]
  - Nausea [Unknown]
